FAERS Safety Report 21068642 (Version 1)
Quarter: 2022Q3

REPORT INFORMATION
  Report Type: Spontaneous
  Country: AR (occurrence: AR)
  Receive Date: 20220712
  Receipt Date: 20220712
  Transmission Date: 20221027
  Serious: Yes (Other)
  Sender: FDA-Public Use
  Company Number: AR-GLAXOSMITHKLINE-AR2022AMR102577

PATIENT

DRUGS (1)
  1. NUCALA [Suspect]
     Active Substance: MEPOLIZUMAB
     Indication: Eosinophilic granulomatosis with polyangiitis
     Dosage: 100 MG, Z (EVERY 28 DAYS)
     Route: 058
     Dates: start: 20200110, end: 20220523

REACTIONS (2)
  - Asthmatic crisis [Unknown]
  - Nasopharyngitis [Not Recovered/Not Resolved]
